FAERS Safety Report 8508640-5 (Version None)
Quarter: 2012Q3

REPORT INFORMATION
  Report Type: 
  Country: None (occurrence: None)
  Receive Date: 20120713
  Receipt Date: 20120707
  Transmission Date: 20120928
  Serious: Yes (Other)
  Sender: FDA-Public Use
  Company Number: US-US-EMD SERONO, INC.-7146294

PATIENT
  Sex: Female
  Weight: 51 kg

DRUGS (2)
  1. REBIF [Suspect]
     Indication: MULTIPLE SCLEROSIS
     Route: 058
     Dates: start: 20060202
  2. REBIF [Suspect]
     Route: 058
     Dates: start: 20060202

REACTIONS (7)
  - HIP FRACTURE [None]
  - ASTHENIA [None]
  - PAIN [None]
  - MUSCULAR WEAKNESS [None]
  - DEHYDRATION [None]
  - BLOOD CALCIUM DECREASED [None]
  - MUSCULOSKELETAL STIFFNESS [None]
